FAERS Safety Report 7308127-1 (Version None)
Quarter: 2011Q1

REPORT INFORMATION
  Report Type: 
  Country: None (occurrence: None)
  Receive Date: 20110223
  Receipt Date: 20110221
  Transmission Date: 20110831
  Serious: Yes (Hospitalization)
  Sender: FDA-Public Use
  Company Number: HK-ROCHE-758182

PATIENT
  Sex: Female
  Weight: 64.3 kg

DRUGS (3)
  1. CARBOPLATIN [Concomitant]
     Dates: start: 20110117
  2. PACLITAXEL [Concomitant]
     Dates: start: 20110117
  3. BEVACIZUMAB [Suspect]
     Dosage: DOSAGE FORM: VIAL. TEMPORARILY INTERRUPTED.
     Route: 042
     Dates: start: 20110117, end: 20110209

REACTIONS (1)
  - HEPATIC ENZYME ABNORMAL [None]
